FAERS Safety Report 10580837 (Version 1)
Quarter: 2014Q4

REPORT INFORMATION
  Report Type: Spontaneous
  Country: AU (occurrence: None)
  Receive Date: 20141110
  Receipt Date: 20141110
  Transmission Date: 20150529
  Serious: Yes (Hospitalization)
  Sender: FDA-Public Use
  Company Number: IMP_08076_2014

PATIENT
  Age: 61 Year
  Sex: Male

DRUGS (1)
  1. METFORMIN [Suspect]
     Active Substance: METFORMIN HYDROCHLORIDE
     Indication: TYPE 2 DIABETES MELLITUS
     Dosage: 1000 MG [PER DAY, NON-COMPLIANCE WITH NO METFORMIN FOR 3 MONTHS]

REACTIONS (2)
  - Lactic acidosis [None]
  - Gastroenteritis [None]
